FAERS Safety Report 5796950-4 (Version None)
Quarter: 2008Q2

REPORT INFORMATION
  Report Type: 
  Country: None (occurrence: None)
  Receive Date: 20080627
  Receipt Date: 20080618
  Transmission Date: 20081010
  Serious: Yes (Other)
  Sender: FDA-Public Use
  Company Number: GXKR2008NL05684

PATIENT
  Age: 79 Year
  Sex: Female

DRUGS (11)
  1. FLUCONAZOLE [Suspect]
     Dosage: 1 DF QD ORAL
     Route: 048
     Dates: start: 20080418, end: 20080419
  2. GLIMEPIRIDE [Suspect]
     Dosage: 1 DF QD ORAL
     Route: 048
  3. AVANDIA [Suspect]
     Dosage: 1 DF, QD, ORAL
     Route: 048
  4. HYZAAR (HYDROCHLOROTHIAZIDE, LOSARTAN POTASSIUM) TABLET [Concomitant]
  5. DIPROSONE [Concomitant]
  6. COSOPT (DORZALAMIDE HYDROCHLORIDE, TIMOLOL MALEATE) [Concomitant]
  7. NEXIUM (ESOMEPRAZOLE MAGNESIUM) TABLET [Concomitant]
  8. CRESTOR (ROSUVASTATIN CALCIUM) FILM-COATED TABLET [Concomitant]
  9. ASASANTIN (ACETYLSALICYIC ACID, DIPYRIDAMOLE) CAPSULE [Concomitant]
  10. VITAMINS (NO INGREDIENTS/SUBSTANCES) [Concomitant]
  11. TIOTROPIUM BROMIDE (TIOTROPIUM BROMIDE) [Concomitant]

REACTIONS (3)
  - BLOOD GLUCOSE DECREASED [None]
  - COMA [None]
  - DRUG INTERACTION [None]
